FAERS Safety Report 7943275-4 (Version None)
Quarter: 2011Q4

REPORT INFORMATION
  Report Type: 
  Country: None (occurrence: None)
  Receive Date: 20111128
  Receipt Date: 20111121
  Transmission Date: 20120403
  Serious: Yes (Hospitalization)
  Sender: FDA-Public Use
  Company Number: PHEH2011US009920

PATIENT
  Sex: Female

DRUGS (1)
  1. GILENYA [Suspect]
     Indication: MULTIPLE SCLEROSIS
     Dosage: 0.5 MG, QD
     Route: 048
     Dates: start: 20111024

REACTIONS (5)
  - PNEUMONIA [None]
  - EAR INFECTION [None]
  - PYREXIA [None]
  - ASTHMA [None]
  - OROPHARYNGEAL PAIN [None]
